FAERS Safety Report 10310361 (Version 1)
Quarter: 2014Q3

REPORT INFORMATION
  Report Type: Spontaneous
  Country: US (occurrence: None)
  Receive Date: 20140716
  Receipt Date: 20140716
  Transmission Date: 20150326
  Serious: Yes (Hospitalization)
  Sender: FDA-Public Use
  Company Number: None

PATIENT
  Age: 58 Year
  Sex: Male
  Weight: 71.9 kg

DRUGS (5)
  1. TAXOTERE [Suspect]
     Active Substance: DOCETAXEL
     Dosage: TOTAL DOSE ADMINISTERED 1.77 ML
  2. HYDROCODONE/APAP [Concomitant]
     Active Substance: ACETAMINOPHEN\HYDROCODONE
  3. DOXYCYCLINE HYCLATE. [Concomitant]
     Active Substance: DOXYCYCLINE HYCLATE
  4. ERBITUX [Suspect]
     Active Substance: CETUXIMAB
     Dosage: TOTAL DOSE ADMINISTERED 1235 MG
  5. CLEOCIN T [Concomitant]
     Active Substance: CLINDAMYCIN PHOSPHATE

REACTIONS (4)
  - Infusion related reaction [None]
  - Chest pain [None]
  - Flushing [None]
  - Hypertension [None]

NARRATIVE: CASE EVENT DATE: 20140708
